FAERS Safety Report 11926806 (Version 1)
Quarter: 2016Q1

REPORT INFORMATION
  Report Type: Spontaneous
  Country: GB (occurrence: GB)
  Receive Date: 20160119
  Receipt Date: 20160119
  Transmission Date: 20160526
  Serious: Yes (Disabling)
  Sender: FDA-Public Use
  Company Number: GB-PFIZER INC-2016017194

PATIENT
  Age: 75 Year
  Sex: Female

DRUGS (2)
  1. PROPRANOLOL TEVA [Concomitant]
     Dosage: UNK
  2. XALATAN [Suspect]
     Active Substance: LATANOPROST
     Dosage: 1 GTT, 1X/DAY INTO THE AFFECTED EYE
     Route: 047
     Dates: start: 20151205

REACTIONS (1)
  - Musculoskeletal pain [Unknown]

NARRATIVE: CASE EVENT DATE: 20151211
